FAERS Safety Report 5379729-7 (Version None)
Quarter: 2007Q3

REPORT INFORMATION
  Report Type: 
  Country: None (occurrence: None)
  Receive Date: 20070706
  Receipt Date: 20070703
  Transmission Date: 20080115
  Serious: Yes (Other)
  Sender: FDA-Public Use
  Company Number: PHEH2007US08931

PATIENT
  Age: 66 Year
  Sex: Male
  Weight: 79.818 kg

DRUGS (4)
  1. ZOMETA [Suspect]
     Indication: PROSTATE CANCER METASTATIC
     Dosage: 4 MG EVERY FOUR WEEKS
  2. LUPRON [Concomitant]
  3. EPOGEN [Concomitant]
  4. CASODEX [Concomitant]

REACTIONS (7)
  - BONE DISORDER [None]
  - CARDIAC MURMUR [None]
  - INFECTION [None]
  - OSTEOMYELITIS [None]
  - OSTEONECROSIS [None]
  - PAIN IN JAW [None]
  - SOFT TISSUE NECROSIS [None]
